FAERS Safety Report 10010909 (Version 1)
Quarter: 2014Q1

REPORT INFORMATION
  Report Type: Spontaneous
  Country: HK (occurrence: None)
  Receive Date: 20140311
  Receipt Date: 20140311
  Transmission Date: 20141002
  Serious: Yes (Hospitalization, Other)
  Sender: FDA-Public Use
  Company Number: FK201400685

PATIENT
  Age: 29 Year
  Sex: Female

DRUGS (4)
  1. HEPARIN [Suspect]
     Indication: ANTICOAGULANT THERAPY
     Dosage: FIRST TRIMESTER OF PREGNANCY, INTRAVENOUS?(NOT OTHERWISE SPECIFIED)
     Route: 042
  2. WARFARIN [Suspect]
     Indication: ANTICOAGULANT THERAPY
     Dosage: DISCONTINUED FIRST TRIMESTER
     Dates: start: 2010
  3. WARFARIN [Suspect]
     Dosage: DISCONTINUED FIRST TRIMESTER
     Dates: start: 2010
  4. ANESTHETICS (ANESTHETICS) [Concomitant]

REACTIONS (7)
  - Splenic rupture [None]
  - Blood pressure diastolic decreased [None]
  - Haemoglobin decreased [None]
  - Peritoneal haemorrhage [None]
  - Caesarean section [None]
  - Maternal exposure during pregnancy [None]
  - Procedural complication [None]
